FAERS Safety Report 17361639 (Version 1)
Quarter: 2020Q1

REPORT INFORMATION
  Report Type: Spontaneous
  Country: US (occurrence: US)
  Receive Date: 20200203
  Receipt Date: 20200203
  Transmission Date: 20200409
  Serious: No
  Sender: FDA-Public Use
  Company Number: US-PFIZER INC-2020042246

PATIENT
  Age: 31 Year
  Sex: Female

DRUGS (2)
  1. XANAX [Suspect]
     Active Substance: ALPRAZOLAM
     Indication: PANIC ATTACK
  2. XANAX [Suspect]
     Active Substance: ALPRAZOLAM
     Indication: ANXIETY
     Dosage: UNK (REPORTED AS LOWEST DOSE), THREE TIMES DAILY AS NEEDED (PRN)
     Route: 048
     Dates: start: 2010, end: 2010

REACTIONS (1)
  - Drug ineffective [Unknown]
